FAERS Safety Report 4523950-4 (Version None)
Quarter: 2004Q4

REPORT INFORMATION
  Report Type: 
  Country: None (occurrence: None)
  Receive Date: 20041209
  Receipt Date: 20041124
  Transmission Date: 20050328
  Serious: Yes (Hospitalization)
  Sender: FDA-Public Use
  Company Number: MEDI-0002452

PATIENT
  Age: 56 Year
  Sex: Male
  Weight: 72.5755 kg

DRUGS (7)
  1. ETHYOL [Suspect]
     Indication: RADIOTHERAPY
     Dosage: 500 MG, 5 IN 1 WK, SUBCUTANEOUS
     Route: 058
     Dates: start: 20041108, end: 20041122
  2. RADIATION THERAPY [Concomitant]
  3. 5-FU (CLUOROURACIL) [Concomitant]
  4. DILANTIN [Concomitant]
  5. LEVAQUIN [Concomitant]
  6. VANCOMYCIN [Concomitant]
  7. ATIVAN [Concomitant]

REACTIONS (11)
  - CARDIAC DISORDER [None]
  - CHILLS [None]
  - DYSPNOEA [None]
  - FEELING ABNORMAL [None]
  - HYPONATRAEMIA [None]
  - MEDICATION ERROR [None]
  - PNEUMONIA VIRAL [None]
  - PULMONARY OEDEMA [None]
  - PYREXIA [None]
  - SEPSIS [None]
  - SINUS TACHYCARDIA [None]
